FAERS Safety Report 20186318 (Version 1)
Quarter: 2021Q4

REPORT INFORMATION
  Report Type: Spontaneous
  Country: US (occurrence: US)
  Receive Date: 20211215
  Receipt Date: 20211215
  Transmission Date: 20220303
  Serious: Yes (Other)
  Sender: FDA-Public Use
  Company Number: US-ORG100016242-2021000859

PATIENT
  Sex: Male

DRUGS (10)
  1. EXPAREL [Suspect]
     Active Substance: BUPIVACAINE
     Dosage: 1.3% LB (2.25 MG/KG) DILUTED IN NORMAL SALINE
     Route: 050
  2. SODIUM CHLORIDE [Concomitant]
     Active Substance: SODIUM CHLORIDE
     Dosage: TO DILUTE EXPAREL
     Route: 050
  3. ACETAMINOPHEN [Concomitant]
     Active Substance: ACETAMINOPHEN
     Dosage: PREOPERATIVE
  4. ACETAMINOPHEN [Concomitant]
     Active Substance: ACETAMINOPHEN
     Dosage: POSTOPERATIVE EVERY 6 HOURS
  5. CELECOXIB [Concomitant]
     Active Substance: CELECOXIB
  6. GABAPENTIN [Concomitant]
     Active Substance: GABAPENTIN
     Dosage: PREOPERATIVE
  7. GABAPENTIN [Concomitant]
     Active Substance: GABAPENTIN
     Dosage: POSTOPERATIVE EVERY 8 HOURS
  8. TORADOL [Concomitant]
     Active Substance: KETOROLAC TROMETHAMINE
     Dosage: EVERY 6 HOURS WITH TRANSITION TO IBUPROFEN
     Route: 042
  9. IBUPROFEN [Concomitant]
     Active Substance: IBUPROFEN
     Dosage: EVERY 4 HOURS
     Route: 048
  10. OXYCODONE [Concomitant]
     Active Substance: OXYCODONE
     Dosage: AS NEEDED (PRN) EVERY 6 HOURS
     Route: 048

REACTIONS (3)
  - Granuloma [Unknown]
  - Off label use [Unknown]
  - Off label use [Unknown]
